FAERS Safety Report 9217055 (Version 2)
Quarter: 2013Q2

REPORT INFORMATION
  Report Type: Spontaneous
  Country: US (occurrence: US)
  Receive Date: 20130408
  Receipt Date: 20130410
  Transmission Date: 20140414
  Serious: Yes (Hospitalization, Other)
  Sender: FDA-Public Use
  Company Number: US-BAYER-2013-042701

PATIENT
  Age: 63 Year
  Sex: Female
  Weight: 79.37 kg

DRUGS (2)
  1. ALEVE CAPLET [Suspect]
     Dosage: 1 DF, UNK
     Route: 048
     Dates: start: 199303, end: 199303
  2. ONE A DAY WOMEN^S 50+ ADVANTAGE [Suspect]
     Dosage: 1 DF, QD
     Route: 048
     Dates: start: 201205, end: 201303

REACTIONS (3)
  - Haemorrhoidal haemorrhage [Not Recovered/Not Resolved]
  - Gastric haemorrhage [Recovered/Resolved]
  - Haematochezia [Not Recovered/Not Resolved]
